FAERS Safety Report 9731128 (Version 1)
Quarter: 2013Q4

REPORT INFORMATION
  Report Type: Spontaneous
  Country: US (occurrence: US)
  Receive Date: 20131203
  Receipt Date: 20131203
  Transmission Date: 20140711
  Serious: No
  Sender: FDA-Public Use
  Company Number: US-BAYER-2013-146592

PATIENT
  Age: 51 Year
  Sex: Male
  Weight: 79.37 kg

DRUGS (7)
  1. BETASERON [Suspect]
     Dosage: 0.25 MG, QOD
     Route: 058
  2. AMANTADINE [Concomitant]
     Dosage: 100 MG, UNK
  3. CENTRUM [Concomitant]
  4. VITAMIN B12 [Concomitant]
     Dosage: 50 ?G, UNK
  5. VITAMIN B6 [Concomitant]
     Dosage: 50 MG, UNK
  6. LORATADINE [Concomitant]
     Dosage: 10 MG, UNK
  7. SUDAFED [Concomitant]
     Dosage: 30 MG, UNK

REACTIONS (3)
  - Vision blurred [Unknown]
  - Muscle spasticity [Unknown]
  - Injury [Unknown]
